FAERS Safety Report 21110457 (Version 1)
Quarter: 2022Q3

REPORT INFORMATION
  Report Type: Spontaneous
  Country: US (occurrence: None)
  Receive Date: 20220720
  Receipt Date: 20220720
  Transmission Date: 20221026
  Serious: No
  Sender: FDA-Public Use
  Company Number: None

PATIENT
  Age: 92 Year
  Sex: Female

DRUGS (1)
  1. PROLIA [Suspect]
     Active Substance: DENOSUMAB
     Indication: Osteoporosis
     Dosage: 62MG  EVERY 6 MONTHS SQ?
     Route: 058
     Dates: start: 20161020

REACTIONS (6)
  - Adverse drug reaction [None]
  - Anxiety [None]
  - Feeling jittery [None]
  - Depressed mood [None]
  - Fatigue [None]
  - Arthralgia [None]

NARRATIVE: CASE EVENT DATE: 20220715
